FAERS Safety Report 8819101 (Version 1)
Quarter: 2012Q4

REPORT INFORMATION
  Report Type: Report from Study
  Country: CA (occurrence: CA)
  Receive Date: 20121001
  Receipt Date: 20121001
  Transmission Date: 20130627
  Serious: Yes (Other)
  Sender: FDA-Public Use
  Company Number: CA-JNJFOC-20120910297

PATIENT
  Age: 70 Year
  Sex: Female

DRUGS (6)
  1. REMICADE [Suspect]
     Indication: CROHN^S DISEASE
     Dosage: 50th infusion
     Route: 042
     Dates: start: 20120809
  2. REMICADE [Suspect]
     Indication: CROHN^S DISEASE
     Route: 042
     Dates: start: 20060321
  3. VITAMIN B12 [Concomitant]
     Route: 065
  4. CALCIUM [Concomitant]
     Route: 065
  5. VITAMIN D [Concomitant]
     Route: 065
  6. ACTONEL [Concomitant]
     Route: 065

REACTIONS (1)
  - Rectal stenosis [Recovered/Resolved]
